FAERS Safety Report 5307307-4 (Version None)
Quarter: 2007Q2

REPORT INFORMATION
  Report Type: 
  Country: None (occurrence: None)
  Receive Date: 20070425
  Receipt Date: 20070412
  Transmission Date: 20071010
  Serious: Yes (Hospitalization)
  Sender: FDA-Public Use
  Company Number: ES-ELI_LILLY_AND_COMPANY-ES200704003494

PATIENT
  Age: 84 Year
  Sex: Female

DRUGS (8)
  1. FORTEO [Suspect]
     Indication: OSTEOPOROSIS
     Dosage: 20 UG, DAILY (1/D)
     Route: 058
     Dates: start: 20061201, end: 20070331
  2. ARICEPT [Concomitant]
     Indication: DEMENTIA ALZHEIMER'S TYPE
  3. PLAVIX [Concomitant]
  4. COZAAR [Concomitant]
     Indication: HYPERTENSION
  5. IBUPROFEN [Concomitant]
  6. SEROPRAM [Concomitant]
     Indication: NERVOUSNESS
  7. ACETAMINOPHEN AND TRAMADOL HCL [Concomitant]
  8. SEPTRIN [Concomitant]
     Indication: URINARY TRACT INFECTION

REACTIONS (1)
  - CEREBRAL INFARCTION [None]
